FAERS Safety Report 4995253-5 (Version None)
Quarter: 2006Q2

REPORT INFORMATION
  Report Type: 
  Country: None (occurrence: None)
  Receive Date: 20060508
  Receipt Date: 20050810
  Transmission Date: 20061013
  Serious: Yes (Hospitalization)
  Sender: FDA-Public Use
  Company Number: US-MERCK-0508USA02127

PATIENT
  Age: 54 Year
  Sex: Male
  Weight: 139 kg

DRUGS (3)
  1. VIOXX [Suspect]
     Indication: BACK PAIN
     Route: 048
     Dates: start: 20010524, end: 20020301
  2. VIOXX [Suspect]
     Indication: INFLAMMATION
     Route: 048
     Dates: start: 20010524, end: 20020301
  3. BEXTRA [Concomitant]
     Route: 065
     Dates: start: 20030501, end: 20050101

REACTIONS (5)
  - DIABETES MELLITUS [None]
  - DYSPNOEA [None]
  - LYMPHOEDEMA [None]
  - OEDEMA PERIPHERAL [None]
  - PULMONARY EMBOLISM [None]
